FAERS Safety Report 19173007 (Version 1)
Quarter: 2021Q2

REPORT INFORMATION
  Report Type: Spontaneous
  Country: ES (occurrence: ES)
  Receive Date: 20210423
  Receipt Date: 20210423
  Transmission Date: 20210717
  Serious: Yes (Other)
  Sender: FDA-Public Use
  Company Number: ES-AMGEN-ESPSP2021061939

PATIENT

DRUGS (1)
  1. PANITUMUMAB [Suspect]
     Active Substance: PANITUMUMAB
     Indication: COLORECTAL CANCER METASTATIC
     Dosage: UNK
     Route: 065

REACTIONS (11)
  - Asthenia [Unknown]
  - Diarrhoea [Unknown]
  - Neutropenia [Unknown]
  - Colorectal cancer metastatic [Unknown]
  - Infection [Unknown]
  - Hepatotoxicity [Unknown]
  - Nausea [Unknown]
  - Haemorrhage [Unknown]
  - Toxicity to various agents [Unknown]
  - Pain [Unknown]
  - Decreased appetite [Unknown]
